FAERS Safety Report 9146921 (Version 1)
Quarter: 2013Q1

REPORT INFORMATION
  Report Type: Spontaneous
  Country: US (occurrence: None)
  Receive Date: 20130228
  Receipt Date: 20130228
  Transmission Date: 20140127
  Serious: Yes (Hospitalization, Disabling)
  Sender: FDA-Public Use
  Company Number: None

PATIENT
  Age: 44 Year
  Sex: Female
  Weight: 54.43 kg

DRUGS (1)
  1. DEPO PROVERA [Suspect]
     Dosage: 1ST DOSE
     Dates: start: 200810

REACTIONS (3)
  - Sensory loss [None]
  - Thrombosis [None]
  - Deep vein thrombosis [None]
